FAERS Safety Report 24415571 (Version 2)
Quarter: 2024Q4

REPORT INFORMATION
  Report Type: Report from Study
  Country: HU (occurrence: HU)
  Receive Date: 20241009
  Receipt Date: 20241109
  Transmission Date: 20250114
  Serious: Yes (Death, Hospitalization)
  Sender: ABBVIE
  Company Number: HU-ABBVIE-5953038

PATIENT
  Age: 76 Year
  Sex: Female

DRUGS (14)
  1. CARBIDOPA\LEVODOPA [Suspect]
     Active Substance: CARBIDOPA\LEVODOPA
     Indication: Parkinson^s disease
     Dosage: MORNING DOSE: 3.5 ML; CONTINUOUS DOSE: 3.6 ML/HOUR; EXTRA DOSE: 1.0 ML
     Route: 050
     Dates: start: 20230927
  2. CARBIDOPA\LEVODOPA [Suspect]
     Active Substance: CARBIDOPA\LEVODOPA
  3. DOMPERIDONE [Concomitant]
     Active Substance: DOMPERIDONE
     Indication: Product used for unknown indication
     Dosage: 20 MILLIGRAM, FORM STRENGTH: 10 MILLIGRAM?EP
     Route: 048
  4. CHLOROPYRAMINE HYDROCHLORIDE [Concomitant]
     Active Substance: CHLOROPYRAMINE HYDROCHLORIDE
     Indication: Autoimmune disorder
     Dosage: TIME INTERVAL: 0.33333333 DAYS
     Route: 048
  5. FUROSEMIDE [Concomitant]
     Active Substance: FUROSEMIDE
     Indication: Hypertension
     Dosage: 1 TABLET ON TUESDAY AND 1 TABLET ON FRIDAY?FORM STRENGTH: 40 MILLIGRAM
     Route: 048
  6. PERINDOPRIL [Concomitant]
     Active Substance: PERINDOPRIL
     Indication: Hypertension
     Dosage: FORM STRENGTH  4 MILLIGRAM
     Route: 048
  7. Apo-famotidin (Famotidine) [Concomitant]
     Indication: Prophylaxis
     Dosage: 80 MILLIGRAM, FORM STRENGTH: 40 MILLIGRAM
     Route: 048
  8. Viregyt k (Amantadine hydrochloride) [Concomitant]
     Indication: Parkinson^s disease
     Dosage: FORM STRENGTH 100 MILLIGRAM
     Route: 048
  9. VITAMIN B12 [Concomitant]
     Active Substance: CYANOCOBALAMIN
     Indication: Prophylaxis
     Dosage: 1000 MICROGRAM / ML
     Route: 058
     Dates: start: 202309
  10. Kaldyum (Potassium chloride) [Concomitant]
     Indication: Hypertension
     Dosage: 1 TABLET ON TUESDAY AND 1 TABLET ON FRIDAY?FORM STRENGTH: 600 MILLIGRAM
     Route: 048
  11. QUETIAPINE FUMARATE [Concomitant]
     Active Substance: QUETIAPINE FUMARATE
     Indication: Anxiety
     Dosage: DOSE 50 MILLIGRAM, FORM STRENGTH: 25 MILLIGRAM
     Route: 048
  12. Frontin (Alprazolam) [Concomitant]
     Indication: Restlessness
     Dosage: 1 GRAM?FORM STRENGTH: 0.25 MILLIGRAM ?MORNING: 1 ; NOON: 1; EVENING: 2
     Route: 048
  13. AMLODIPINE [Concomitant]
     Active Substance: AMLODIPINE BESYLATE
     Indication: Hypertension
     Dosage: 5 MILLIGRAM, FORM STRENGTH: 5 MILLIGRAM
     Route: 048
  14. ENOXAPARIN SODIUM [Concomitant]
     Active Substance: ENOXAPARIN SODIUM
     Indication: Pulmonary embolism
     Route: 058

REACTIONS (5)
  - Staphylococcal infection [Fatal]
  - Somnolence [Recovered/Resolved]
  - Sepsis [Recovered/Resolved]
  - Cardiac failure [Fatal]
  - Feeding disorder [Not Recovered/Not Resolved]

NARRATIVE: CASE EVENT DATE: 20240901
